FAERS Safety Report 7828597-X (Version None)
Quarter: 2011Q4

REPORT INFORMATION
  Report Type: 
  Country: None (occurrence: None)
  Receive Date: 20111020
  Receipt Date: 20111018
  Transmission Date: 20120403
  Serious: No
  Sender: FDA-Public Use
  Company Number: US-B.I. PHARMACEUTICALS,INC./RIDGEFIELD-2011-BP-22341BP

PATIENT
  Age: 81 Year
  Sex: Female
  Weight: 78.93 kg

DRUGS (5)
  1. PRADAXA [Suspect]
     Indication: ATRIAL FIBRILLATION
     Dosage: 300 MG
     Route: 048
     Dates: start: 20110708, end: 20110818
  2. ASPIRIN [Concomitant]
     Dosage: 81 MG
     Dates: start: 20071218
  3. VITAMIN D [Concomitant]
     Dosage: 1000 MG
     Dates: start: 20110321
  4. METOPROLOL TARTRATE [Concomitant]
     Dosage: 50 MG
     Dates: start: 20090715
  5. MELOXICAM [Concomitant]
     Dosage: 15 MG
     Dates: start: 20110708

REACTIONS (4)
  - HAEMARTHROSIS [None]
  - JOINT EFFUSION [None]
  - SWELLING [None]
  - PAIN [None]
